FAERS Safety Report 23616082 (Version 1)
Quarter: 2024Q1

REPORT INFORMATION
  Report Type: Spontaneous
  Country: IT (occurrence: IT)
  Receive Date: 20240311
  Receipt Date: 20240311
  Transmission Date: 20240410
  Serious: Yes (Other)
  Sender: FDA-Public Use
  Company Number: None

PATIENT
  Age: 59 Year
  Sex: Male
  Weight: 66 kg

DRUGS (6)
  1. ZETIA [Suspect]
     Active Substance: EZETIMIBE
     Indication: Hypercholesterolaemia
     Dosage: UNK (IT WAS ADMINISTRATED FOR SURE SINCE 2006; THE THERAPY PROBABLY STARTED BEFORE, ZETIA WAS ADMINI
     Route: 048
     Dates: start: 2015, end: 2023
  2. ROSUVASTATIN [Suspect]
     Active Substance: ROSUVASTATIN
     Indication: Hypercholesterolaemia
     Dosage: UNK ( IN 2011 THERE WERE APPROXIMATELY 6 MONTHS OF SUSPENSION OF THERAPY (IN WHICH CRESTOR WAS ADMIN
     Route: 048
     Dates: start: 2011, end: 2015
  3. ATORVASTATIN [Suspect]
     Active Substance: ATORVASTATIN
     Indication: Hypercholesterolaemia
     Dosage: 10 MG
     Route: 048
     Dates: start: 2006, end: 2010
  4. CRESTOR [Suspect]
     Active Substance: ROSUVASTATIN CALCIUM
     Dosage: UNK (ADMINISTRATED FOR ABOUT 6 MONTHS)
     Dates: start: 2011, end: 2011
  5. XANAX [Concomitant]
     Active Substance: ALPRAZOLAM
     Dosage: THE ADMINISTRATION BEGAN BETWEEN 2005 AND 2006
     Dates: start: 2005, end: 2006
  6. ASPIRIN [Concomitant]
     Active Substance: ASPIRIN
     Dosage: IT WAS ADMINISTRATED FOR SURE SINCE 2006; THE THERAPY PROBABLY WAS STARTED BEFORE

REACTIONS (3)
  - Myalgia [Recovering/Resolving]
  - Pain in extremity [Recovering/Resolving]
  - Liver injury [Not Recovered/Not Resolved]

NARRATIVE: CASE EVENT DATE: 20100105
